FAERS Safety Report 12890015 (Version 1)
Quarter: 2016Q4

REPORT INFORMATION
  Report Type: Spontaneous
  Country: CN (occurrence: CN)
  Receive Date: 20161027
  Receipt Date: 20161027
  Transmission Date: 20170207
  Serious: Yes (Other)
  Sender: FDA-Public Use
  Company Number: CN-FRESENIUS KABI-FK201608209

PATIENT
  Age: 28 Year
  Sex: Female
  Weight: 52 kg

DRUGS (5)
  1. PROPOFOL (MANUFACTURER UNKNOWN) [Suspect]
     Active Substance: PROPOFOL
     Indication: ENDOSCOPY UPPER GASTROINTESTINAL TRACT
     Route: 041
  2. PROPOFOL (MANUFACTURER UNKNOWN) [Suspect]
     Active Substance: PROPOFOL
     Route: 040
  3. ONDANSETRON [Suspect]
     Active Substance: ONDANSETRON
     Indication: ENDOSCOPY UPPER GASTROINTESTINAL TRACT
     Route: 041
  4. DEZOCINE [Suspect]
     Active Substance: DEZOCINE
     Indication: ENDOSCOPY UPPER GASTROINTESTINAL TRACT
     Route: 041
  5. PROPOFOL (MANUFACTURER UNKNOWN) [Suspect]
     Active Substance: PROPOFOL
     Route: 041

REACTIONS (1)
  - Seizure [Recovered/Resolved]
